FAERS Safety Report 8568161-0 (Version None)
Quarter: 2012Q3

REPORT INFORMATION
  Report Type: 
  Country: None (occurrence: None)
  Receive Date: 20120803
  Receipt Date: 20110803
  Transmission Date: 20120928
  Serious: No
  Sender: FDA-Public Use
  Company Number: US-ABBOTT-11P-163-0843699-00

PATIENT
  Sex: Female
  Weight: 70.824 kg

DRUGS (6)
  1. NIASPAN [Suspect]
  2. METOLIZONE [Concomitant]
     Indication: HYPERTENSION
  3. COZAAR [Concomitant]
     Indication: PRODUCT USED FOR UNKNOWN INDICATION
  4. NIASPAN [Suspect]
     Indication: BLOOD CHOLESTEROL
  5. CLARITIN [Concomitant]
     Indication: SINUSITIS
  6. SINGULAIR [Concomitant]
     Indication: SINUSITIS

REACTIONS (7)
  - HYPOPNOEA [None]
  - FATIGUE [None]
  - COUGH [None]
  - ABDOMINAL DISCOMFORT [None]
  - DYSPNOEA [None]
  - LISTLESS [None]
  - VOMITING [None]
